FAERS Safety Report 25383798 (Version 3)
Quarter: 2025Q3

REPORT INFORMATION
  Report Type: Report from Study
  Country: US (occurrence: US)
  Receive Date: 20250602
  Receipt Date: 20250912
  Transmission Date: 20251021
  Serious: Yes (Hospitalization)
  Sender: BOEHRINGER INGELHEIM
  Company Number: US-BoehringerIngelheim-2025-BI-071312

PATIENT
  Age: 75 Year
  Sex: Female

DRUGS (2)
  1. OFEV [Suspect]
     Active Substance: NINTEDANIB
     Indication: Idiopathic pulmonary fibrosis
     Dates: start: 20250512, end: 20250521
  2. OFEV [Suspect]
     Active Substance: NINTEDANIB

REACTIONS (9)
  - Diarrhoea [Not Recovered/Not Resolved]
  - Dehydration [Unknown]
  - Blood potassium increased [Unknown]
  - Renal impairment [Not Recovered/Not Resolved]
  - Oxygen saturation abnormal [Not Recovered/Not Resolved]
  - Blood pressure fluctuation [Not Recovered/Not Resolved]
  - Hypersomnia [Not Recovered/Not Resolved]
  - Fatigue [Not Recovered/Not Resolved]
  - Asthenia [Not Recovered/Not Resolved]

NARRATIVE: CASE EVENT DATE: 20250512
